FAERS Safety Report 10038787 (Version 2)
Quarter: 2014Q1

REPORT INFORMATION
  Report Type: Spontaneous
  Country: AU (occurrence: AU)
  Receive Date: 20140326
  Receipt Date: 20140326
  Transmission Date: 20141002
  Serious: Yes (Death, Other)
  Sender: FDA-Public Use
  Company Number: AU-ACTELION-A-CH2013-82744

PATIENT
  Age: 74 Year
  Sex: Female

DRUGS (5)
  1. TRACLEER [Suspect]
     Indication: PULMONARY ARTERIAL HYPERTENSION
     Dosage: 125 MG, BID
     Route: 048
     Dates: start: 200801
  2. TRACLEER [Suspect]
     Dosage: 62.5 MG, BID
     Route: 048
     Dates: start: 200712, end: 200801
  3. SILDENAFIL [Concomitant]
  4. PREDNISOLONE [Concomitant]
  5. AZATHIOPRINE [Concomitant]

REACTIONS (3)
  - Death [Fatal]
  - Pulmonary arterial hypertension [Not Recovered/Not Resolved]
  - Disease progression [Not Recovered/Not Resolved]
